FAERS Safety Report 23712960 (Version 1)
Quarter: 2024Q2

REPORT INFORMATION
  Report Type: Spontaneous
  Country: US (occurrence: None)
  Receive Date: 20240405
  Receipt Date: 20240405
  Transmission Date: 20240716
  Serious: No
  Sender: FDA-Public Use
  Company Number: None

PATIENT
  Sex: Female

DRUGS (7)
  1. GAMMAGARD LIQUID [Suspect]
     Active Substance: HUMAN IMMUNOGLOBULIN G
     Indication: Systemic lupus erythematosus
     Dosage: 5 GM EVERY 2 WEEKS INTRAVENOUSLY
     Route: 042
     Dates: start: 202205
  2. METHYLPREDNISOLONE SODIUM SUCCINATE [Suspect]
     Active Substance: METHYLPREDNISOLONE SODIUM SUCCINATE
     Indication: Drug therapy
     Dosage: 125MG  EVERY 2 WEEKS INTRAVENOUSLY
     Route: 042
     Dates: start: 202205
  3. HEPARIN [Concomitant]
     Active Substance: HEPARIN SODIUM
  4. EPlNEPHRINE [Concomitant]
  5. DROXIDOPA [Concomitant]
     Active Substance: DROXIDOPA
  6. DIPHENHYDRAMINE [Concomitant]
     Active Substance: DIPHENHYDRAMINE
  7. BACTERIOSTATIC WATER [Concomitant]

REACTIONS (1)
  - Cystitis [None]
